FAERS Safety Report 21218664 (Version 5)
Quarter: 2023Q2

REPORT INFORMATION
  Report Type: Other
  Country: CA (occurrence: None)
  Receive Date: 20220816
  Receipt Date: 20230503
  Transmission Date: 20230721
  Serious: Yes (Other)
  Sender: FDA-Public Use
  Company Number: CA-ROCHE-2867567

PATIENT
  Age: 31 Year
  Sex: Female

DRUGS (4)
  1. OCREVUS [Suspect]
     Active Substance: OCRELIZUMAB
     Indication: Relapsing-remitting multiple sclerosis
     Dosage: DAY 0, 14 THEN 600 MG Q6M 300 MG AT DAY 0 AND 14, THEN 600 MG EVERY 6 MONTH?SUBSEQUENT DOSE: 21/APR
     Route: 042
     Dates: start: 20210120
  2. MODERNA COVID-19 VACCINE [Suspect]
     Active Substance: ELASOMERAN
     Indication: Product used for unknown indication
     Route: 065
  3. PREGABALIN [Concomitant]
     Active Substance: PREGABALIN
  4. MODERNA COVID-19 VACCINE [Concomitant]
     Active Substance: ELASOMERAN
     Dosage: 3 VACCINES

REACTIONS (6)
  - Foot fracture [Not Recovered/Not Resolved]
  - Fall [Unknown]
  - Arthropathy [Unknown]
  - COVID-19 [Recovered/Resolved]
  - Muscular weakness [Recovered/Resolved]
  - Menstruation delayed [Unknown]

NARRATIVE: CASE EVENT DATE: 20210707
